FAERS Safety Report 6999182-7 (Version None)
Quarter: 2010Q3

REPORT INFORMATION
  Report Type: 
  Country: None (occurrence: None)
  Receive Date: 20100920
  Receipt Date: 20100120
  Transmission Date: 20110219
  Serious: No
  Sender: FDA-Public Use
  Company Number: US-ASTRAZENECA-2010SE02683

PATIENT
  Sex: Female
  Weight: 43.1 kg

DRUGS (5)
  1. SEROQUEL [Suspect]
     Route: 048
  2. DEPAKOTE [Concomitant]
  3. TORPOL [Concomitant]
  4. VITAMIN D [Concomitant]
  5. ASPIRIN [Concomitant]

REACTIONS (1)
  - ANGER [None]
